FAERS Safety Report 7317016-8 (Version None)
Quarter: 2011Q1

REPORT INFORMATION
  Report Type: 
  Country: None (occurrence: None)
  Receive Date: 20110226
  Receipt Date: 20100914
  Transmission Date: 20110831
  Serious: No
  Sender: FDA-Public Use
  Company Number: US-ALLERGAN-1011908US

PATIENT
  Age: 58 Year
  Sex: Female

DRUGS (1)
  1. BOTOX COSMETIC [Suspect]
     Indication: SKIN WRINKLING
     Dosage: 23 UNITS, SINGLE
     Route: 030
     Dates: start: 20100907, end: 20100907

REACTIONS (6)
  - BLOOD PRESSURE INCREASED [None]
  - DRY EYE [None]
  - HEADACHE [None]
  - VISUAL ACUITY REDUCED [None]
  - FATIGUE [None]
  - EYE PAIN [None]
